FAERS Safety Report 24146630 (Version 3)
Quarter: 2025Q2

REPORT INFORMATION
  Report Type: Spontaneous
  Country: GR (occurrence: GR)
  Receive Date: 20240729
  Receipt Date: 20250624
  Transmission Date: 20250716
  Serious: Yes (Other)
  Sender: MYLAN
  Company Number: GR-TEVA-VS-3219029

PATIENT
  Age: 78 Year
  Sex: Female

DRUGS (2)
  1. METHOTREXATE [Suspect]
     Active Substance: METHOTREXATE
     Indication: Diabetes mellitus
  2. METHOTREXATE [Suspect]
     Active Substance: METHOTREXATE
     Indication: Rheumatoid arthritis

REACTIONS (10)
  - Septic shock [Unknown]
  - Pseudomonas infection [Unknown]
  - Acute kidney injury [Unknown]
  - Pancytopenia [Unknown]
  - Cheilitis [Unknown]
  - Toxicity to various agents [Unknown]
  - Mouth haemorrhage [Unknown]
  - Inflammatory marker increased [Unknown]
  - Gingivitis [Unknown]
  - Hepatic enzyme abnormal [Unknown]
